FAERS Safety Report 25737149 (Version 1)
Quarter: 2025Q3

REPORT INFORMATION
  Report Type: Spontaneous
  Country: EU (occurrence: EU)
  Receive Date: 20250828
  Receipt Date: 20250828
  Transmission Date: 20251020
  Serious: Yes (Other)
  Sender: MYLAN
  Company Number: None

PATIENT
  Age: 43 Year
  Sex: Male

DRUGS (4)
  1. EPIPEN [Suspect]
     Active Substance: EPINEPHRINE
     Indication: Product used for unknown indication
     Dosage: 1 DOSAGE FORM, QD, SOLUTION FOR INJECTION (IM) IN PRE-FILLED  ROUTE OF ADMINISTRATION: PARENTERAL
     Dates: start: 20250629, end: 20250629
  2. EPIPEN [Suspect]
     Active Substance: EPINEPHRINE
     Dosage: 1 DOSAGE FORM, QD, SOLUTION FOR INJECTION (IM) IN PRE-FILLED  ROUTE OF ADMINISTRATION: PARENTERAL
     Route: 065
     Dates: start: 20250629, end: 20250629
  3. EPIPEN [Suspect]
     Active Substance: EPINEPHRINE
     Dosage: 1 DOSAGE FORM, QD, SOLUTION FOR INJECTION (IM) IN PRE-FILLED  ROUTE OF ADMINISTRATION: PARENTERAL
     Route: 065
     Dates: start: 20250629, end: 20250629
  4. EPIPEN [Suspect]
     Active Substance: EPINEPHRINE
     Dosage: 1 DOSAGE FORM, QD, SOLUTION FOR INJECTION (IM) IN PRE-FILLED  ROUTE OF ADMINISTRATION: PARENTERAL
     Dates: start: 20250629, end: 20250629

REACTIONS (3)
  - Injection site ischaemia [Recovered/Resolved]
  - Tremor [Recovered/Resolved]
  - Wrong technique in product usage process [Recovered/Resolved]

NARRATIVE: CASE EVENT DATE: 20250629
